FAERS Safety Report 20356489 (Version 1)
Quarter: 2022Q1

REPORT INFORMATION
  Report Type: Spontaneous
  Country: CN (occurrence: None)
  Receive Date: 20220120
  Receipt Date: 20220120
  Transmission Date: 20220423
  Serious: Yes (Other)
  Sender: FDA-Public Use
  Company Number: CN-ROCHE-3003444

PATIENT
  Age: 38 Year
  Sex: Female

DRUGS (18)
  1. RITUXIMAB [Suspect]
     Active Substance: RITUXIMAB
     Indication: Diffuse large B-cell lymphoma
     Dosage: R-CHOP
     Route: 065
     Dates: start: 20191029
  2. RITUXIMAB [Suspect]
     Active Substance: RITUXIMAB
     Dosage: R-DICE
     Route: 065
     Dates: start: 20210223
  3. RITUXIMAB [Suspect]
     Active Substance: RITUXIMAB
     Dosage: R2
     Route: 065
     Dates: start: 20210827
  4. OBINUTUZUMAB [Suspect]
     Active Substance: OBINUTUZUMAB
     Indication: Diffuse large B-cell lymphoma
     Route: 042
     Dates: start: 20211110
  5. DOXORUBICIN [Concomitant]
     Active Substance: DOXORUBICIN
     Indication: Diffuse large B-cell lymphoma
     Dosage: R-CHOP
     Route: 065
     Dates: start: 20191022
  6. VINCRISTINE [Concomitant]
     Active Substance: VINCRISTINE
     Indication: Diffuse large B-cell lymphoma
     Dosage: R-CHOP
     Route: 065
     Dates: start: 20191022
  7. VINCRISTINE [Concomitant]
     Active Substance: VINCRISTINE
     Dosage: EPOCH
     Route: 065
     Dates: start: 20191110
  8. PREDNISONE [Concomitant]
     Active Substance: PREDNISONE
     Indication: Diffuse large B-cell lymphoma
     Dosage: -CHOP
     Dates: start: 20191022
  9. DEXAMETHASONE [Concomitant]
     Active Substance: DEXAMETHASONE
  10. IFOSFAMIDE [Concomitant]
     Active Substance: IFOSFAMIDE
  11. CISPLATIN [Concomitant]
     Active Substance: CISPLATIN
  12. ETOPOSIDE [Concomitant]
     Active Substance: ETOPOSIDE
  13. GEMCITABINE [Concomitant]
     Active Substance: GEMCITABINE
  14. OXALIPLATIN [Concomitant]
     Active Substance: OXALIPLATIN
  15. LENALIDOMIDE [Concomitant]
     Active Substance: LENALIDOMIDE
  16. ADRIAMYCIN [Concomitant]
     Active Substance: DOXORUBICIN HYDROCHLORIDE
  17. FLUDARABINE [Concomitant]
     Active Substance: FLUDARABINE PHOSPHATE
  18. CYCLOPHOSPHAMIDE [Concomitant]
     Active Substance: CYCLOPHOSPHAMIDE

REACTIONS (2)
  - Agranulocytosis [Recovered/Resolved]
  - Off label use [Unknown]
